FAERS Safety Report 25433829 (Version 1)
Quarter: 2025Q2

REPORT INFORMATION
  Report Type: Spontaneous
  Country: US (occurrence: US)
  Receive Date: 20250613
  Receipt Date: 20250613
  Transmission Date: 20250717
  Serious: Yes (Other)
  Sender: GLAXOSMITHKLINE
  Company Number: US-GLAXOSMITHKLINE INC-US2025AMR072282

PATIENT
  Sex: Female

DRUGS (2)
  1. BENLYSTA [Suspect]
     Active Substance: BELIMUMAB
     Indication: Systemic lupus erythematosus
     Dosage: 800 MG, Q4W SINGLE DOSE VIAL
  2. BENLYSTA [Suspect]
     Active Substance: BELIMUMAB
     Dosage: 114 MG, Q4W SINGLE DOSE VIAL

REACTIONS (1)
  - Systemic lupus erythematosus [Not Recovered/Not Resolved]
